FAERS Safety Report 9893907 (Version 2)
Quarter: 2014Q1

REPORT INFORMATION
  Report Type: Spontaneous
  Country: JP (occurrence: JP)
  Receive Date: 20140213
  Receipt Date: 20140213
  Transmission Date: 20141002
  Serious: Yes (Hospitalization)
  Sender: FDA-Public Use
  Company Number: JP-JNJFOC-20140116727

PATIENT
  Age: 64 Year
  Sex: Male

DRUGS (4)
  1. TRAMCET [Suspect]
     Indication: PRODUCT USED FOR UNKNOWN INDICATION
     Dosage: 2 PER 1 DAY
     Route: 048
  2. INSULIN [Concomitant]
     Route: 065
  3. LYRICA [Concomitant]
     Route: 048
  4. CLARITH [Concomitant]
     Route: 048

REACTIONS (3)
  - Loss of consciousness [Recovered/Resolved]
  - Convulsion [Recovered/Resolved]
  - Treatment noncompliance [Unknown]
